FAERS Safety Report 21959579 (Version 1)
Quarter: 2023Q1

REPORT INFORMATION
  Report Type: Spontaneous
  Country: US (occurrence: None)
  Receive Date: 20230203
  Receipt Date: 20230203
  Transmission Date: 20230417
  Serious: No
  Sender: FDA-Public Use
  Company Number: None

PATIENT
  Sex: Male

DRUGS (1)
  1. OVIDREL [Suspect]
     Active Substance: CHORIOGONADOTROPIN ALFA
     Dosage: OTHER STRENGTH : 250MCG/0.5ML;?FREQUENCY : TWICE A DAY;?
     Route: 058

REACTIONS (1)
  - Off label use [None]
